FAERS Safety Report 12935372 (Version 3)
Quarter: 2017Q2

REPORT INFORMATION
  Report Type: Spontaneous
  Country: US (occurrence: US)
  Receive Date: 20161114
  Receipt Date: 20170418
  Transmission Date: 20170830
  Serious: Yes (Other)
  Sender: FDA-Public Use
  Company Number: US-JAZZ-2016-US-018790

PATIENT
  Age: 28 Year
  Sex: Female
  Weight: 188 kg

DRUGS (26)
  1. CLOTRIMAZOLE. [Concomitant]
     Active Substance: CLOTRIMAZOLE
  2. METHOCARBAMOL. [Concomitant]
     Active Substance: METHOCARBAMOL
  3. COENZYME Q10 [Concomitant]
     Active Substance: UBIDECARENONE
  4. RITALIN [Concomitant]
     Active Substance: METHYLPHENIDATE HYDROCHLORIDE
  5. ADVAIR HFA [Concomitant]
     Active Substance: FLUTICASONE PROPIONATE\SALMETEROL XINAFOATE
  6. CONCERTA [Concomitant]
     Active Substance: METHYLPHENIDATE HYDROCHLORIDE
  7. ALBUTEROL                          /00139501/ [Concomitant]
     Active Substance: ALBUTEROL
  8. HALLS [Concomitant]
     Active Substance: MENTHOL
  9. ALBUTEROL SULFATE. [Concomitant]
     Active Substance: ALBUTEROL SULFATE
  10. MULTIVITAMINS                      /00116001/ [Concomitant]
  11. CELEBREX [Concomitant]
     Active Substance: CELECOXIB
  12. FLUOXETINE HCL [Concomitant]
     Active Substance: FLUOXETINE HYDROCHLORIDE
  13. METHYLPHENIDATE. [Concomitant]
     Active Substance: METHYLPHENIDATE
  14. ROBAXIN [Concomitant]
     Active Substance: METHOCARBAMOL
  15. XYREM [Suspect]
     Active Substance: SODIUM OXYBATE
     Dosage: 4.5 G, BID
     Route: 048
     Dates: start: 20150918, end: 20160419
  16. FUROSEMIDE. [Concomitant]
     Active Substance: FUROSEMIDE
  17. GABAPENTIN. [Concomitant]
     Active Substance: GABAPENTIN
  18. XYREM [Suspect]
     Active Substance: SODIUM OXYBATE
     Indication: NARCOLEPSY
     Dosage: 3 G, BID
     Route: 048
     Dates: start: 201301, end: 201302
  19. NUVIGIL [Concomitant]
     Active Substance: ARMODAFINIL
     Dosage: UNK
     Dates: end: 20160229
  20. ZOFRAN [Concomitant]
     Active Substance: ONDANSETRON HYDROCHLORIDE
  21. CLARITIN [Concomitant]
     Active Substance: LORATADINE
  22. PROZAC [Concomitant]
     Active Substance: FLUOXETINE HYDROCHLORIDE
  23. XYREM [Suspect]
     Active Substance: SODIUM OXYBATE
     Indication: CATAPLEXY
     Dosage: DOSE ADJUSTMENTS
     Route: 048
     Dates: start: 201302, end: 2015
  24. FISH OIL [Concomitant]
     Active Substance: FISH OIL
  25. BUPROPION. [Concomitant]
     Active Substance: BUPROPION
  26. FLONASE                            /00908302/ [Concomitant]
     Active Substance: MOMETASONE FUROATE

REACTIONS (3)
  - Exposure during pregnancy [Unknown]
  - Pre-eclampsia [Unknown]
  - Premature baby [Unknown]

NARRATIVE: CASE EVENT DATE: 20160804
